FAERS Safety Report 18479734 (Version 5)
Quarter: 2020Q4

REPORT INFORMATION
  Report Type: Spontaneous
  Country: US (occurrence: US)
  Receive Date: 20201109
  Receipt Date: 20201207
  Transmission Date: 20210114
  Serious: Yes (Hospitalization, Other)
  Sender: FDA-Public Use
  Company Number: US-PFIZER INC-2020425520

PATIENT
  Age: 71 Year
  Sex: Female

DRUGS (5)
  1. METRONIDAZOLE. [Suspect]
     Active Substance: METRONIDAZOLE
     Indication: CLOSTRIDIUM COLITIS
     Dosage: 500 MG, 3X/DAY
     Route: 048
  2. AMIODARONE IVAX [Interacting]
     Active Substance: AMIODARONE HYDROCHLORIDE
     Indication: PSEUDOMEMBRANOUS COLITIS
     Dosage: 900 MG, DAILY
     Route: 042
  3. AMIODARONE IVAX [Interacting]
     Active Substance: AMIODARONE HYDROCHLORIDE
     Indication: ARRHYTHMIA
  4. METRONIDAZOLE. [Interacting]
     Active Substance: METRONIDAZOLE
     Indication: PSEUDOMEMBRANOUS COLITIS
  5. AMIODARONE IVAX [Interacting]
     Active Substance: AMIODARONE HYDROCHLORIDE
     Indication: CLOSTRIDIUM COLITIS
     Dosage: 450 MG BOLUS
     Route: 042

REACTIONS (7)
  - Electrocardiogram QT prolonged [Unknown]
  - Mitral valve incompetence [Unknown]
  - Ventricular tachycardia [Unknown]
  - Tricuspid valve incompetence [Unknown]
  - Atrial fibrillation [Unknown]
  - Drug interaction [Unknown]
  - Torsade de pointes [Unknown]
